FAERS Safety Report 15884168 (Version 5)
Quarter: 2019Q3

REPORT INFORMATION
  Report Type: Spontaneous
  Country: US (occurrence: US)
  Receive Date: 20190129
  Receipt Date: 20190701
  Transmission Date: 20191004
  Serious: Yes (Other)
  Sender: FDA-Public Use
  Company Number: PHEH2019US003893

PATIENT
  Sex: Male

DRUGS (3)
  1. AFINITOR [Suspect]
     Active Substance: EVEROLIMUS
     Indication: RENAL CANCER
     Dosage: 5 MG, QD
     Route: 048
  2. LENVIMA [Suspect]
     Active Substance: LENVATINIB
     Dosage: 12 MG, QD
     Route: 048
  3. LENVIMA [Suspect]
     Active Substance: LENVATINIB
     Indication: RENAL CANCER
     Dosage: 8 MG, QD
     Route: 048

REACTIONS (7)
  - Pulmonary oedema [Unknown]
  - Stomatitis [Unknown]
  - Decreased appetite [Unknown]
  - Neoplasm progression [Unknown]
  - Abdominal pain upper [Unknown]
  - Fatigue [Unknown]
  - Back pain [Unknown]
